FAERS Safety Report 24894916 (Version 3)
Quarter: 2025Q1

REPORT INFORMATION
  Report Type: Spontaneous
  Country: US (occurrence: US)
  Receive Date: 20250128
  Receipt Date: 20250327
  Transmission Date: 20250408
  Serious: Yes (Other)
  Sender: PFIZER
  Company Number: US-PFIZER INC-PV202500010183

PATIENT
  Age: 77 Year
  Sex: Female

DRUGS (1)
  1. PREMARIN [Suspect]
     Active Substance: ESTROGENS, CONJUGATED
     Dosage: 3 MG, 1X/DAY
     Route: 048

REACTIONS (4)
  - Neovascular age-related macular degeneration [Recovering/Resolving]
  - Neck surgery [Recovered/Resolved]
  - Shoulder operation [Recovered/Resolved with Sequelae]
  - Off label use [Unknown]

NARRATIVE: CASE EVENT DATE: 20220101
